FAERS Safety Report 8131334-5 (Version None)
Quarter: 2012Q1

REPORT INFORMATION
  Report Type: 
  Country: None (occurrence: None)
  Receive Date: 20120213
  Receipt Date: 20120202
  Transmission Date: 20120608
  Serious: Yes (Death, Hospitalization, Other)
  Sender: FDA-Public Use
  Company Number: JP-BRISTOL-MYERS SQUIBB COMPANY-16302176

PATIENT
  Age: 68 Year
  Sex: Male

DRUGS (11)
  1. SERMION [Concomitant]
     Dosage: TAB
  2. MICARDIS [Concomitant]
     Dosage: TAB
  3. ABILIFY [Suspect]
     Indication: PERSONALITY DISORDER
     Route: 048
     Dates: start: 20110319, end: 20111221
  4. CALCITRIOL [Concomitant]
     Dosage: CAPS
  5. GRAMALIL [Concomitant]
     Dosage: TAB
  6. LANSOPRAZOLE [Concomitant]
     Dosage: TAB
  7. ABILIFY [Suspect]
     Indication: RESTLESSNESS
     Route: 048
     Dates: start: 20110319, end: 20111221
  8. CEFAZOLIN SODIUM [Concomitant]
     Dosage: ORAL POWDER
     Route: 048
  9. RIZE [Concomitant]
     Dosage: TAB
  10. EPINASTINE HYDROCHLORIDE [Concomitant]
  11. ABILIFY [Suspect]
     Indication: DELIRIUM
     Route: 048
     Dates: start: 20110319, end: 20111221

REACTIONS (3)
  - GASTROINTESTINAL HAEMORRHAGE [None]
  - PNEUMONIA ASPIRATION [None]
  - BLOOD GLUCOSE DECREASED [None]
